FAERS Safety Report 20867114 (Version 1)
Quarter: 2022Q2

REPORT INFORMATION
  Report Type: Spontaneous
  Country: US (occurrence: None)
  Receive Date: 20220523
  Receipt Date: 20220523
  Transmission Date: 20220721
  Serious: No
  Sender: FDA-Public Use
  Company Number: None

PATIENT
  Age: 77 Year
  Sex: Female

DRUGS (1)
  1. TACROLIMUS [Suspect]
     Active Substance: TACROLIMUS
     Indication: Renal transplant
     Dosage: 0.5MG DAILY ORAL?
     Route: 048
     Dates: start: 202112

REACTIONS (2)
  - Wrong schedule [None]
  - Incorrect dose administered [None]

NARRATIVE: CASE EVENT DATE: 20220523
